FAERS Safety Report 6130045-5 (Version None)
Quarter: 2009Q1

REPORT INFORMATION
  Report Type: 
  Country: None (occurrence: None)
  Receive Date: 20090324
  Receipt Date: 20090317
  Transmission Date: 20090719
  Serious: Yes (Hospitalization, Other)
  Sender: FDA-Public Use
  Company Number: US-AVENTIS-200910794US

PATIENT
  Sex: Male
  Weight: 96.16 kg

DRUGS (22)
  1. LANTUS [Suspect]
     Route: 058
  2. OPTICLIK (INSULIN INJECTION PEN) [Suspect]
  3. COUMADIN [Suspect]
     Dosage: DOSE: UNK
     Dates: end: 20081101
  4. FLAGYL [Suspect]
     Dosage: DOSE: UNK
  5. NOVOLOG [Concomitant]
     Dosage: DOSE: SLIDING SCALE, BEFORE MEALS
  6. METOPROLOL TARTRATE [Concomitant]
     Dosage: DOSE: 1/2 DF
  7. DIGOXIN [Concomitant]
  8. LISINOPRIL [Concomitant]
     Dosage: DOSE: 1/2 DF
  9. FLOMAX [Concomitant]
  10. SIMVASTATIN [Concomitant]
  11. GUAIFENESIN [Concomitant]
  12. POTASSIUM CHLORIDE [Concomitant]
  13. METFORMIN [Concomitant]
  14. PENTOXIFYLLINE [Concomitant]
  15. FUROSEMIDE [Concomitant]
  16. GLYBURIDE [Concomitant]
  17. PERCOCET [Concomitant]
     Dosage: DOSE: 5-325 MG
  18. VITAMIN B12 AMINO [Concomitant]
  19. IRON [Concomitant]
  20. MAGNESIUM SULFATE [Concomitant]
     Dosage: DOSE: 1 TABLET
  21. FOLIC ACID [Concomitant]
  22. COMBIVENT                          /01033501/ [Concomitant]

REACTIONS (8)
  - BLOOD GLUCOSE INCREASED [None]
  - CELLULITIS [None]
  - CLOSTRIDIAL INFECTION [None]
  - ERYTHEMA [None]
  - HYPOGLYCAEMIA [None]
  - MUSCULOSKELETAL STIFFNESS [None]
  - PNEUMONIA [None]
  - SUBDURAL HAEMATOMA [None]
